FAERS Safety Report 25635749 (Version 1)
Quarter: 2025Q3

REPORT INFORMATION
  Report Type: Other
  Country: GB (occurrence: GB)
  Receive Date: 20250802
  Receipt Date: 20250802
  Transmission Date: 20251020
  Serious: Yes (Other)
  Sender: MACLEODS
  Company Number: GB-MHRA-TPP22074611C11290816YC1753171722082

PATIENT

DRUGS (8)
  1. ESCITALOPRAM [Suspect]
     Active Substance: ESCITALOPRAM OXALATE
     Indication: Product used for unknown indication
     Dosage: ONE TABLET TO BE TAKEN ONCE A DAY
     Route: 065
  2. MIRTAZAPINE [Concomitant]
     Active Substance: MIRTAZAPINE
     Indication: Depressed mood
     Dosage: ONE TABLET TO BE TAKEN AT NIGHT FOR LOW MOOD
     Route: 065
     Dates: start: 20250409, end: 20250530
  3. ZOPICLONE [Concomitant]
     Active Substance: ZOPICLONE
     Route: 065
     Dates: start: 20250604, end: 20250611
  4. OMEPRAZOLE [Concomitant]
     Active Substance: OMEPRAZOLE
     Indication: Ill-defined disorder
     Dosage: 1 ONCE EVERY DAY
     Route: 065
     Dates: start: 20250515
  5. ZOLPIDEM [Concomitant]
     Active Substance: ZOLPIDEM TARTRATE
     Indication: Ill-defined disorder
     Dosage: TAKE ONE AT NIGHT NOT FOR REGULAR OR LONG TERM USE
     Route: 065
     Dates: start: 20250718
  6. FLUOXETINE [Concomitant]
     Active Substance: FLUOXETINE HYDROCHLORIDE
     Indication: Ill-defined disorder
     Dosage: ONE CAPSULE TO BE TAKEN IN THE MORNING TO RAISE...
     Route: 065
  7. DIAZEPAM [Concomitant]
     Active Substance: DIAZEPAM
     Indication: Ill-defined disorder
     Dosage: ONE TABLET TO BE TAKEN UP TO TWICE A DAY WHEN R...
     Route: 065
     Dates: start: 20250409
  8. CITALOPRAM [Concomitant]
     Active Substance: CITALOPRAM
     Indication: Ill-defined disorder
     Route: 065
     Dates: start: 20250502

REACTIONS (2)
  - Abdominal pain upper [Recovering/Resolving]
  - Abdominal discomfort [Unknown]
